FAERS Safety Report 8412091-1 (Version None)
Quarter: 2012Q2

REPORT INFORMATION
  Report Type: 
  Country: None (occurrence: None)
  Receive Date: 20120605
  Receipt Date: 20120502
  Transmission Date: 20120825
  Serious: No
  Sender: FDA-Public Use
  Company Number: US-AMGEN-USASP2012027739

PATIENT
  Age: 48 Year
  Sex: Female

DRUGS (2)
  1. ENBREL [Suspect]
     Indication: RHEUMATOID ARTHRITIS
     Dosage: 50 MG, QWK
     Dates: start: 20120209
  2. METHOTREXATE [Concomitant]
     Dosage: UNK MG, 6 TABLETS WEEKLY

REACTIONS (2)
  - ABSCESS ORAL [None]
  - LIP SWELLING [None]
